FAERS Safety Report 13174263 (Version 1)
Quarter: 2017Q1

REPORT INFORMATION
  Report Type: Report from Study
  Country: US (occurrence: IE)
  Receive Date: 20170131
  Receipt Date: 20170131
  Transmission Date: 20170428
  Serious: Yes (Other)
  Sender: FDA-Public Use
  Company Number: US-SUNOVION-2017SUN000366

PATIENT

DRUGS (9)
  1. INSPRA [Concomitant]
     Active Substance: EPLERENONE
     Dosage: UNK
  2. PROCORALAN [Concomitant]
     Active Substance: IVABRADINE
     Dosage: UNK
  3. DYMISTA [Concomitant]
     Active Substance: AZELASTINE HYDROCHLORIDE\FLUTICASONE PROPIONATE
     Dosage: UNK
     Route: 045
  4. ELTROXIN [Concomitant]
     Active Substance: LEVOTHYROXINE
     Dosage: UNK
  5. STILNOCT [Concomitant]
     Active Substance: ZOLPIDEM TARTRATE
     Dosage: UNK
  6. INDACATEROL AND GLYCOPYRROLATE [Suspect]
     Active Substance: GLYCOPYRROLATE\INDACATEROL MALEATE
     Indication: CHRONIC OBSTRUCTIVE PULMONARY DISEASE
     Dosage: 1 DF, UNK
     Route: 055
     Dates: start: 20140730, end: 20160607
  7. NEBIVOLOL TEVA [Concomitant]
     Dosage: UNK
  8. LEVITRA [Concomitant]
     Active Substance: VARDENAFIL HYDROCHLORIDE TRIHYDRATE
     Dosage: UNK
  9. VALSARTAN. [Concomitant]
     Active Substance: VALSARTAN
     Dosage: UNK

REACTIONS (11)
  - Cough [Recovering/Resolving]
  - Wheezing [Unknown]
  - Throat irritation [Unknown]
  - Myalgia intercostal [Unknown]
  - Peak expiratory flow rate increased [Unknown]
  - Blood pressure systolic increased [Unknown]
  - Dry mouth [Recovering/Resolving]
  - Herpes zoster [Unknown]
  - Varicose vein [Unknown]
  - Sputum discoloured [Unknown]
  - Productive cough [Unknown]

NARRATIVE: CASE EVENT DATE: 20160315
